FAERS Safety Report 8522714 (Version 5)
Quarter: 2013Q1

REPORT INFORMATION
  Report Type: Spontaneous
  Country: US (occurrence: US)
  Receive Date: 20120419
  Receipt Date: 20130228
  Transmission Date: 20140127
  Serious: Yes (Hospitalization)
  Sender: FDA-Public Use
  Company Number: US-ELI_LILLY_AND_COMPANY-US201202005197

PATIENT
  Sex: Female

DRUGS (13)
  1. FORTEO [Suspect]
     Indication: OSTEOPOROSIS
     Dosage: 20 UG, QD
     Route: 065
     Dates: start: 20120208
  2. FORTEO [Suspect]
     Dosage: 20 UG, QD
     Route: 065
  3. FORTEO [Suspect]
     Dosage: 20 UG, QD
     Route: 065
  4. FORTEO [Suspect]
     Dosage: 20 UG, QD
     Route: 065
  5. FORTEO [Suspect]
  6. CALCIUM [Concomitant]
  7. VITAMIN D NOS [Concomitant]
  8. VITAMIN B COMPLEX [Concomitant]
  9. STOOL SOFTENER [Concomitant]
  10. PROBIOTICS [Concomitant]
  11. VALIUM [Concomitant]
     Indication: SURGERY
  12. TYLENOL                                 /SCH/ [Concomitant]
  13. VITAMIN C [Concomitant]

REACTIONS (13)
  - Clavicle fracture [Unknown]
  - Abdominal discomfort [Unknown]
  - Pain in extremity [Unknown]
  - Flatulence [Unknown]
  - Injection site pain [Not Recovered/Not Resolved]
  - Diarrhoea [Unknown]
  - Injection site haemorrhage [Not Recovered/Not Resolved]
  - Drug dose omission [Unknown]
  - Fatigue [Unknown]
  - Injection site mass [Unknown]
  - Exfoliative rash [Unknown]
  - Injection site bruising [Unknown]
  - Constipation [Not Recovered/Not Resolved]
